FAERS Safety Report 25803438 (Version 2)
Quarter: 2025Q3

REPORT INFORMATION
  Report Type: Spontaneous
  Country: US (occurrence: US)
  Receive Date: 20250915
  Receipt Date: 20250925
  Transmission Date: 20251020
  Serious: Yes (Hospitalization)
  Sender: CALLIDITAS THERAPEUTICS AB
  Company Number: US-Calliditas-2025CAL02784

PATIENT
  Age: 67 Year
  Sex: Female

DRUGS (13)
  1. TARPEYO [Suspect]
     Active Substance: BUDESONIDE
     Indication: IgA nephropathy
     Dosage: 8MG (4MG CAPSULES) ONCE DAILY
     Route: 048
     Dates: start: 20250528
  2. ASPIRIN [Concomitant]
     Active Substance: ASPIRIN
  3. ENTOCORT [Concomitant]
     Active Substance: BUDESONIDE
  4. LIPITOR [Concomitant]
     Active Substance: ATORVASTATIN CALCIUM
  5. LISINOPRIL [Concomitant]
     Active Substance: LISINOPRIL
  6. METOPROLOL [Concomitant]
     Active Substance: METOPROLOL
  7. MYCOPHENOLIC ACID [Concomitant]
     Active Substance: MYCOPHENOLIC ACID
  8. FERRIC POLYSACCHARIDE COMPLEX [Concomitant]
     Active Substance: FERRIC POLYSACCHARIDE COMPLEX
  9. NULOJIX [Concomitant]
     Active Substance: BELATACEPT
  10. PROTONIX [Concomitant]
     Active Substance: PANTOPRAZOLE SODIUM
  11. TACROLIMUS [Concomitant]
     Active Substance: TACROLIMUS
  12. CHOLECALCIFEROL [Concomitant]
     Active Substance: CHOLECALCIFEROL
  13. ZYRTEC [Concomitant]
     Active Substance: CETIRIZINE HYDROCHLORIDE

REACTIONS (3)
  - Weight increased [Recovering/Resolving]
  - Prescribed underdose [Recovering/Resolving]
  - Gastric haemorrhage [Unknown]

NARRATIVE: CASE EVENT DATE: 20250914
